FAERS Safety Report 23757925 (Version 2)
Quarter: 2024Q2

REPORT INFORMATION
  Report Type: Spontaneous
  Country: US (occurrence: US)
  Receive Date: 20240418
  Receipt Date: 20240423
  Transmission Date: 20240716
  Serious: No
  Sender: FDA-Public Use
  Company Number: US-ACER THERAPEUTICS INC.-2024-SPO-OLP-0001

PATIENT

DRUGS (1)
  1. OLPRUVA [Suspect]
     Active Substance: SODIUM PHENYLBUTYRATE
     Indication: Product used for unknown indication
     Route: 065

REACTIONS (1)
  - Dizziness [Unknown]
